FAERS Safety Report 9842313 (Version 1)
Quarter: 2013Q4

REPORT INFORMATION
  Report Type: Spontaneous
  Country: US (occurrence: None)
  Receive Date: 20131219
  Receipt Date: 20131219
  Transmission Date: 20140711
  Serious: Yes (Other)
  Sender: FDA-Public Use
  Company Number: 163-20785-13053384

PATIENT
  Age: 69 Day
  Sex: Male
  Weight: 95.26 kg

DRUGS (22)
  1. THALOMID (THALIDOMIDE) (100 MILLIGRAM, CAPSULES) [Suspect]
     Indication: PLASMA CELL MYELOMA
     Dosage: 200 MG, 2 IN 1 D, PO
     Route: 048
     Dates: start: 200509
  2. ACYCLOVIR (ACICLOVIR) (UNKNOWN) [Concomitant]
  3. AMBIEN (ZOLPIDEM TARTRATE) (UNKNOWN) [Concomitant]
  4. ATIVAN (LORAZEPAM) (UNKNOWN) [Concomitant]
  5. CELEXA (CITALOPRAM HYDROBROMIDE) (UNKNOWN) [Concomitant]
  6. CYTOXAN (CYCLOPHOSPHAMIDE) (UNKNOWN) [Concomitant]
  7. DAPSONE (DAPSONE) (UNKNOWN) [Concomitant]
  8. DEXAMETHASONE (DEXAMETHASONE) (UNKNOWN) [Concomitant]
  9. DIFLUCAN (FLUCONAZOLE) (UNKNOWN) [Concomitant]
  10. DOCUSATE SODIUM (DOCUSATE SODIUM) (UNKNOWN) [Concomitant]
  11. INNUMOGLOB G (IVIG) (IMMUNOGLOBULIN) (UNKNOWN) [Concomitant]
  12. KYTRIL (GRANISETRON) (UNKNOWN) [Concomitant]
  13. LEVAQUIN (LEVOFLOXACIN) (UNKNOWN) [Concomitant]
  14. LYRICA (PREGABALIN) (UNKNOWN) [Concomitant]
  15. MAGNESIUM OXIDE (MAGNESIUM OXIDE) (UNKNOWN) [Concomitant]
  16. NEULASTA (PEGFILGRASTIM) (UNKNOWN) [Concomitant]
  17. OXYCODONE (OXYCODONE) (UNKNOWN) (OXYCODONE) [Concomitant]
  18. OXYCONTIN (OXYCODONE HYDROCHLORIDE) (UNKNOWN) [Concomitant]
  19. POTASSIUM CHLORIDE (POTASSIUM CHLORIDE) (UNKNOWN) [Concomitant]
  20. PROCRIT (ERYTHROPOIETIN) (UNKNOWN) [Concomitant]
  21. SODIUM (SODIUM) (TABLETS) [Concomitant]
  22. SYNTHROID (LEVOTHYROXINE SODIUM) (UNKNOWN) [Concomitant]

REACTIONS (1)
  - Plasmacytoma [None]
